FAERS Safety Report 4445203-5 (Version None)
Quarter: 2004Q3

REPORT INFORMATION
  Report Type: 
  Country: None (occurrence: None)
  Receive Date: 20040903
  Receipt Date: 20040823
  Transmission Date: 20050211
  Serious: Yes (Other)
  Sender: FDA-Public Use
  Company Number: SUS1-2004-00500

PATIENT
  Age: 14 Year
  Sex: Female

DRUGS (1)
  1. ADDERALL XR (AMPHETAMINE ASPARTATE, AMPHETAMINE SULFATE, DEXTROAMPHETA [Suspect]
     Dosage: 15 MG, 1X, 1X/DAY;QD
     Dates: start: 20040818, end: 20040801

REACTIONS (3)
  - ASTHMA [None]
  - COUGH [None]
  - THROAT IRRITATION [None]
